FAERS Safety Report 14426365 (Version 2)
Quarter: 2018Q1

REPORT INFORMATION
  Report Type: Spontaneous
  Country: CH (occurrence: CH)
  Receive Date: 20180123
  Receipt Date: 20180209
  Transmission Date: 20180509
  Serious: Yes (Hospitalization, Other)
  Sender: FDA-Public Use
  Company Number: CH-BAYER-2018-013595

PATIENT
  Age: 21 Year
  Sex: Female

DRUGS (1)
  1. QLAIRA [Suspect]
     Active Substance: DIENOGEST\ESTRADIOL VALERATE
     Indication: CONTRACEPTION
     Dosage: 1 DF, QD
     Route: 048
     Dates: start: 201308, end: 201710

REACTIONS (2)
  - Paraplegia [Recovering/Resolving]
  - Spinal cord ischaemia [Recovering/Resolving]

NARRATIVE: CASE EVENT DATE: 20170402
